FAERS Safety Report 5113616-4 (Version None)
Quarter: 2006Q3

REPORT INFORMATION
  Report Type: 
  Country: None (occurrence: None)
  Receive Date: 20060920
  Receipt Date: 20060901
  Transmission Date: 20061208
  Serious: Yes (Hospitalization)
  Sender: FDA-Public Use
  Company Number: FR200609000376

PATIENT
  Age: 80 Year
  Sex: Female
  Weight: 68 kg

DRUGS (9)
  1. PROZAC [Suspect]
     Dosage: 20 MG, DAILY (1/D), ORAL
     Route: 048
     Dates: start: 19960701, end: 20060623
  2. MICARDIS PLUS / (HYDROCHLOROTHIAZIDE, TELMISARTAN) [Concomitant]
  3. ALENDRONATE SODIUM [Concomitant]
  4. VASTAREL (TRIMETAZIDINE HYDROCHLORIDE) [Concomitant]
  5. BUSPAR [Concomitant]
  6. RABEPRAZOLE SODIUM [Concomitant]
  7. SYMBICORT (BUDESONIDE, FORMOTEROL FUMARATE) [Concomitant]
  8. DOMPERIDONE [Concomitant]
  9. FENOFIBRATE [Concomitant]

REACTIONS (6)
  - ANOREXIA [None]
  - DRUG INTERACTION [None]
  - GENERAL PHYSICAL HEALTH DETERIORATION [None]
  - HYPONATRAEMIA [None]
  - VOMITING [None]
  - WEIGHT DECREASED [None]
